FAERS Safety Report 7040525-6 (Version None)
Quarter: 2010Q4

REPORT INFORMATION
  Report Type: 
  Country: None (occurrence: None)
  Receive Date: 20101008
  Receipt Date: 20101008
  Transmission Date: 20110411
  Serious: No
  Sender: FDA-Public Use
  Company Number: None

PATIENT
  Sex: Female
  Weight: 64.4108 kg

DRUGS (2)
  1. FOSAMAX [Suspect]
     Indication: OSTEOPOROSIS
     Dosage: 70 MG ONCE A WEEK
     Dates: start: 20091101
  2. FOSAMAX [Suspect]
     Indication: OSTEOPOROSIS
     Dosage: 70 MG ONCE A WEEK
     Dates: start: 20100801

REACTIONS (6)
  - ABDOMINAL DISTENSION [None]
  - DYSPEPSIA [None]
  - DYSPHAGIA [None]
  - EYE PAIN [None]
  - GINGIVAL ATROPHY [None]
  - IMPLANT SITE PAIN [None]
